FAERS Safety Report 16483098 (Version 1)
Quarter: 2019Q2

REPORT INFORMATION
  Report Type: Spontaneous
  Country: US (occurrence: US)
  Receive Date: 20190516
  Receipt Date: 20190516
  Transmission Date: 20190711
  Serious: Yes (Death, Hospitalization)
  Sender: FDA-Public Use
  Company Number: None

PATIENT
  Age: 20 Year
  Sex: Male

DRUGS (17)
  1. BUDESONIDE SUS [Concomitant]
  2. CALCIUM CARB SUS [Concomitant]
  3. MELATONIN TAB [Concomitant]
  4. RANITIDINE SYP [Concomitant]
  5. ALBUTEROL AER HFA [Concomitant]
  6. VALRPOIC ACD SOL [Concomitant]
  7. CETIRIZINE TAB [Concomitant]
  8. GLYOPYRROL SPR [Concomitant]
  9. PHENOBARB SOL [Concomitant]
  10. VITAMIN D TAB [Concomitant]
  11. TOBRAMYCIN 300MG/ML [Suspect]
     Active Substance: TOBRAMYCIN
     Indication: CYSTIC FIBROSIS
     Route: 055
     Dates: start: 20181213
  12. CLONIDINE TAB [Concomitant]
  13. NYSTATIN OIN [Concomitant]
  14. SOD CHLORIDE NEB [Concomitant]
  15. LEVETIRACETA SOL [Concomitant]
  16. DEEP SEA SPR [Concomitant]
  17. SMOOTH LAX POW [Concomitant]

REACTIONS (1)
  - Pneumonia [None]

NARRATIVE: CASE EVENT DATE: 20190508
